FAERS Safety Report 9914298 (Version 1)
Quarter: 2014Q1

REPORT INFORMATION
  Report Type: Spontaneous
  Country: US (occurrence: None)
  Receive Date: 20140218
  Receipt Date: 20140218
  Transmission Date: 20141002
  Serious: No
  Sender: FDA-Public Use
  Company Number: 2014-00030

PATIENT
  Age: 65 Year
  Sex: Female
  Weight: 68.04 kg

DRUGS (2)
  1. ZICAM INTENSE SINUS RELIEF NASAL GEL [Suspect]
     Indication: NASOPHARYNGITIS
     Dosage: 1-2 SPRAYS EACH NOSTRIL TWICE
     Dates: start: 20140209, end: 20140209
  2. TRAVATAN EYE DROPS [Concomitant]

REACTIONS (1)
  - Anosmia [None]
